FAERS Safety Report 5632658-3 (Version None)
Quarter: 2008Q1

REPORT INFORMATION
  Report Type: 
  Country: None (occurrence: None)
  Receive Date: 20080220
  Receipt Date: 20080208
  Transmission Date: 20080703
  Serious: Yes (Death, Other)
  Sender: FDA-Public Use
  Company Number: US-PFIZER INC-2008013968

PATIENT
  Age: 45 Year
  Sex: Female

DRUGS (3)
  1. SERTRALINE [Suspect]
  2. FENTANYL [Suspect]
  3. AMITRIPTYLINE HCL [Suspect]

REACTIONS (2)
  - COMPLETED SUICIDE [None]
  - DRUG TOXICITY [None]
